FAERS Safety Report 6755481-5 (Version None)
Quarter: 2010Q2

REPORT INFORMATION
  Report Type: 
  Country: None (occurrence: None)
  Receive Date: 20100601
  Receipt Date: 20100520
  Transmission Date: 20101027
  Serious: Yes (Hospitalization)
  Sender: FDA-Public Use
  Company Number: 006115

PATIENT
  Sex: Male
  Weight: 47.7 kg

DRUGS (6)
  1. CERTOLIZUMAB PEGOL [Suspect]
     Indication: CROHN'S DISEASE
     Dosage: (200 MG 1X/2 WEEKS SUBCUTANEOUS)
     Route: 058
     Dates: start: 20090818, end: 20100519
  2. PREVACID [Concomitant]
  3. COSOPT [Concomitant]
  4. PRENATAL VITAMINS /01549301/ [Concomitant]
  5. TYLENOL (CAPLET) [Concomitant]
  6. TYLENOL W/ CODEINE NO. 3 [Concomitant]

REACTIONS (10)
  - ANAL FISTULA [None]
  - BLOOD ALBUMIN DECREASED [None]
  - BLOOD PRESSURE INCREASED [None]
  - DISEASE RECURRENCE [None]
  - ENTEROCOCCUS TEST POSITIVE [None]
  - ESCHERICHIA TEST POSITIVE [None]
  - HAEMOGLOBIN DECREASED [None]
  - PERINEAL ABSCESS [None]
  - PLATELET COUNT INCREASED [None]
  - TOOTHACHE [None]
